FAERS Safety Report 5024049-3 (Version None)
Quarter: 2006Q2

REPORT INFORMATION
  Report Type: 
  Country: None (occurrence: None)
  Receive Date: 20060607
  Receipt Date: 20060526
  Transmission Date: 20061013
  Serious: Yes (Other)
  Sender: FDA-Public Use
  Company Number: 2006-05-2179

PATIENT
  Sex: Female

DRUGS (1)
  1. ALBUTEROL SULFATE AUTOHALER [Suspect]
     Indication: EAR PAIN
     Dosage: ORAL AER INH
     Route: 048

REACTIONS (9)
  - DIZZINESS [None]
  - DRUG PRESCRIBING ERROR [None]
  - DYSPNOEA [None]
  - HEADACHE [None]
  - LOSS OF CONSCIOUSNESS [None]
  - NAUSEA [None]
  - NON-CARDIAC CHEST PAIN [None]
  - SLEEP APNOEA SYNDROME [None]
  - VOMITING [None]
